FAERS Safety Report 17727178 (Version 1)
Quarter: 2020Q2

REPORT INFORMATION
  Report Type: Report from Study
  Country: PL (occurrence: PL)
  Receive Date: 20200430
  Receipt Date: 20200430
  Transmission Date: 20200714
  Serious: Yes (Hospitalization)
  Sender: FDA-Public Use
  Company Number: PL-ASTRAZENECA-2020SE56115

PATIENT
  Age: 67 Year
  Sex: Female

DRUGS (16)
  1. IDELALISIB [Suspect]
     Active Substance: IDELALISIB
     Indication: CHRONIC LYMPHOCYTIC LEUKAEMIA STAGE 1
     Route: 048
     Dates: start: 20170612, end: 20170723
  2. RITUXIMAB. [Suspect]
     Active Substance: RITUXIMAB
     Indication: CHRONIC LYMPHOCYTIC LEUKAEMIA STAGE 1
     Dosage: 730.0MG/M2 ONCE/SINGLE ADMINISTRATION
     Route: 042
     Dates: start: 20171002, end: 20171002
  3. ACALABRUTINIB. [Suspect]
     Active Substance: ACALABRUTINIB
     Indication: CHRONIC LYMPHOCYTIC LEUKAEMIA STAGE 1
     Dosage: CROSS OVER TREATMENT
     Route: 048
     Dates: start: 20181220, end: 20190609
  4. ACALABRUTINIB. [Suspect]
     Active Substance: ACALABRUTINIB
     Indication: CHRONIC LYMPHOCYTIC LEUKAEMIA STAGE 1
     Route: 048
     Dates: start: 20190701, end: 20200301
  5. RITUXIMAB. [Suspect]
     Active Substance: RITUXIMAB
     Indication: CHRONIC LYMPHOCYTIC LEUKAEMIA STAGE 1
     Dosage: 730.0MG/M2 ONCE/SINGLE ADMINISTRATION
     Route: 042
     Dates: start: 20170918, end: 20170918
  6. BUFOMIX EASYHALER -BUDESONIDE+FORMOTERO L FUMARATE [Concomitant]
     Indication: INTERSTITIAL LUNG DISEASE
     Route: 055
     Dates: start: 20200221
  7. RITUXIMAB. [Suspect]
     Active Substance: RITUXIMAB
     Indication: CHRONIC LYMPHOCYTIC LEUKAEMIA STAGE 1
     Dosage: 547.0MG/M2 ONCE/SINGLE ADMINISTRATION
     Route: 042
     Dates: start: 20170612, end: 20170612
  8. RITUXIMAB. [Suspect]
     Active Substance: RITUXIMAB
     Indication: CHRONIC LYMPHOCYTIC LEUKAEMIA STAGE 1
     Dosage: 730.0MG/M2 ONCE/SINGLE ADMINISTRATION
     Route: 042
     Dates: start: 20170626, end: 20170626
  9. RITUXIMAB. [Suspect]
     Active Substance: RITUXIMAB
     Indication: CHRONIC LYMPHOCYTIC LEUKAEMIA STAGE 1
     Dosage: 730.0MG/M2 ONCE/SINGLE ADMINISTRATION
     Route: 042
     Dates: start: 20170808, end: 20170808
  10. ACALABRUTINIB. [Suspect]
     Active Substance: ACALABRUTINIB
     Indication: CHRONIC LYMPHOCYTIC LEUKAEMIA STAGE 1
     Route: 048
     Dates: start: 20200317
  11. RITUXIMAB. [Suspect]
     Active Substance: RITUXIMAB
     Indication: CHRONIC LYMPHOCYTIC LEUKAEMIA STAGE 1
     Dosage: END OF STUDY TREATMENT730.0MG/M2 ONCE/SINGLE ADMINISTRATION
     Route: 042
     Dates: start: 20171030, end: 20171030
  12. ATROVENT - IPRATROPII BROMIDUM [Concomitant]
     Indication: INTERSTITIAL LUNG DISEASE
     Route: 055
     Dates: start: 20200221
  13. RITUXIMAB. [Suspect]
     Active Substance: RITUXIMAB
     Indication: CHRONIC LYMPHOCYTIC LEUKAEMIA STAGE 1
     Dosage: 730.0MG/M2 ONCE/SINGLE ADMINISTRATION
     Route: 042
     Dates: start: 20170710, end: 20170710
  14. IBANDRONIC ACID. [Concomitant]
     Active Substance: IBANDRONIC ACID
     Indication: OSTEOPOROSIS
     Route: 042
     Dates: start: 2015
  15. PULNEO- FENSPIRYD [Concomitant]
     Indication: INTERSTITIAL LUNG DISEASE
     Dosage: 2 OTHER DAILY
     Route: 055
     Dates: start: 20200221
  16. IDELALISIB [Suspect]
     Active Substance: IDELALISIB
     Indication: CHRONIC LYMPHOCYTIC LEUKAEMIA STAGE 1
     Dosage: END OF STUDY TREATMENT
     Route: 048
     Dates: start: 20170729, end: 20180814

REACTIONS (1)
  - Interstitial lung disease [Recovered/Resolved]

NARRATIVE: CASE EVENT DATE: 20200304
